FAERS Safety Report 16369692 (Version 4)
Quarter: 2019Q4

REPORT INFORMATION
  Report Type: Spontaneous
  Country: CO (occurrence: CO)
  Receive Date: 20190530
  Receipt Date: 20191202
  Transmission Date: 20200122
  Serious: Yes (Hospitalization, Other)
  Sender: FDA-Public Use
  Company Number: CO-AMGEN-COLSP2018152552

PATIENT
  Age: 61 Year
  Sex: Female

DRUGS (2)
  1. ENBREL [Suspect]
     Active Substance: ETANERCEPT
     Dosage: 50 MILLIGRAM
     Route: 058
     Dates: end: 201907
  2. ENBREL [Suspect]
     Active Substance: ETANERCEPT
     Indication: RHEUMATOID ARTHRITIS
     Dosage: 50 MILLIGRAM, QWK
     Route: 058
     Dates: start: 201808

REACTIONS (8)
  - Inflammation [Unknown]
  - Stomatitis [Unknown]
  - Oral mucosal blistering [Unknown]
  - Pain [Unknown]
  - Gait disturbance [Unknown]
  - Blister [Unknown]
  - Ulcer [Unknown]
  - Bone pain [Unknown]

NARRATIVE: CASE EVENT DATE: 2018
